FAERS Safety Report 6194621-6 (Version None)
Quarter: 2009Q2

REPORT INFORMATION
  Report Type: 
  Country: None (occurrence: None)
  Receive Date: 20090519
  Receipt Date: 20090512
  Transmission Date: 20091009
  Serious: Yes (Life-Threatening, Other)
  Sender: FDA-Public Use
  Company Number: TW-BRISTOL-MYERS SQUIBB COMPANY-14626238

PATIENT
  Age: 43 Year
  Sex: Female

DRUGS (1)
  1. METFORMIN HCL [Suspect]

REACTIONS (7)
  - ELECTROLYTE IMBALANCE [None]
  - HYPOGLYCAEMIA [None]
  - HYPOTHERMIA [None]
  - INTENTIONAL OVERDOSE [None]
  - LACTIC ACIDOSIS [None]
  - SUICIDE ATTEMPT [None]
  - TACHYCARDIA [None]
